FAERS Safety Report 5114845-6 (Version None)
Quarter: 2006Q3

REPORT INFORMATION
  Report Type: 
  Country: None (occurrence: None)
  Receive Date: 20060926
  Receipt Date: 20060221
  Transmission Date: 20061208
  Serious: Yes (Hospitalization)
  Sender: FDA-Public Use
  Company Number: NL-BAYER-200610758GDS

PATIENT
  Age: 58 Year
  Sex: Male
  Weight: 86 kg

DRUGS (9)
  1. SORAFENIB [Suspect]
     Indication: MALIGNANT MELANOMA
     Dosage: TOTAL DAILY DOSE: 800 MG
     Route: 048
     Dates: start: 20060216, end: 20060224
  2. CARBOPLATIN [Suspect]
     Indication: MALIGNANT MELANOMA
     Route: 042
     Dates: start: 20060215, end: 20060215
  3. PACLITAXEL [Suspect]
     Indication: MALIGNANT MELANOMA
     Route: 042
     Dates: start: 20060215, end: 20060215
  4. OXAZEPAM [Concomitant]
     Indication: INSOMNIA
     Route: 048
     Dates: start: 20051101
  5. PARACETAMOL [Concomitant]
     Indication: NECK PAIN
     Route: 048
     Dates: start: 20051101
  6. IBUPROFEN [Concomitant]
     Indication: NECK PAIN
     Route: 048
     Dates: start: 20050101
  7. SELOKEEN [Concomitant]
     Indication: MYOCARDIAL ISCHAEMIA
     Route: 048
     Dates: start: 20060224
  8. ASCAL [Concomitant]
     Indication: THROMBOSIS PROPHYLAXIS
     Route: 048
     Dates: start: 20060224, end: 20060302
  9. NITROGLYCERIN [Concomitant]
     Indication: CHEST PAIN
     Route: 065
     Dates: start: 20060224, end: 20060302

REACTIONS (1)
  - DYSPNOEA [None]
